FAERS Safety Report 20085544 (Version 1)
Quarter: 2021Q4

REPORT INFORMATION
  Report Type: Spontaneous
  Country: US (occurrence: None)
  Receive Date: 20211118
  Receipt Date: 20211118
  Transmission Date: 20220303
  Serious: Yes (Life-Threatening, Hospitalization, Other)
  Sender: FDA-Public Use
  Company Number: US-MLMSERVICE-20211028-3191670-1

PATIENT
  Age: 31 Year
  Sex: Female

DRUGS (2)
  1. PROPRANOLOL HYDROCHLORIDE [Suspect]
     Active Substance: PROPRANOLOL HYDROCHLORIDE
     Indication: Supraventricular tachycardia
     Dosage: UNKNOWN
     Route: 065
  2. ADENOSINE [Concomitant]
     Active Substance: ADENOSINE
     Indication: Supraventricular tachycardia
     Dosage: UNKNOWN
     Route: 065

REACTIONS (3)
  - Hypotension [Recovering/Resolving]
  - Cardiac arrest [Recovered/Resolved]
  - Thyrotoxic crisis [Recovering/Resolving]
